FAERS Safety Report 18430241 (Version 1)
Quarter: 2020Q4

REPORT INFORMATION
  Report Type: Spontaneous
  Country: US (occurrence: US)
  Receive Date: 20201027
  Receipt Date: 20201027
  Transmission Date: 20210114
  Serious: No
  Sender: FDA-Public Use
  Company Number: US-TEVA-2020-US-1841494

PATIENT
  Age: 35 Year
  Sex: Female
  Weight: 54.43 kg

DRUGS (1)
  1. ANTABUSE [Suspect]
     Active Substance: DISULFIRAM
     Indication: ALCOHOL USE
     Route: 065

REACTIONS (1)
  - Drug ineffective [Not Recovered/Not Resolved]
